FAERS Safety Report 7959905-7 (Version None)
Quarter: 2011Q4

REPORT INFORMATION
  Report Type: 
  Country: None (occurrence: None)
  Receive Date: 20111206
  Receipt Date: 20111201
  Transmission Date: 20120403
  Serious: Yes (Hospitalization, Disabling)
  Sender: FDA-Public Use
  Company Number: US-MERCK-1107USA01810

PATIENT
  Sex: Male

DRUGS (2)
  1. BONIVA [Suspect]
     Indication: OSTEOPOROSIS
     Route: 065
     Dates: start: 20070101, end: 20080101
  2. FOSAMAX [Suspect]
     Indication: OSTEOPOROSIS
     Route: 048
     Dates: start: 19980101, end: 20070801

REACTIONS (8)
  - OSTEOMYELITIS [None]
  - TOOTH DISORDER [None]
  - SKIN ULCER [None]
  - ANGIOPATHY [None]
  - HYPOTHYROIDISM [None]
  - RENAL IMPAIRMENT [None]
  - FEMUR FRACTURE [None]
  - IMPAIRED HEALING [None]
